FAERS Safety Report 9436099 (Version 1)
Quarter: 2013Q3

REPORT INFORMATION
  Report Type: Spontaneous
  Country: DK (occurrence: FR)
  Receive Date: 20130801
  Receipt Date: 20130801
  Transmission Date: 20140515
  Serious: Yes (Hospitalization)
  Sender: FDA-Public Use
  Company Number: FR-FRI-1000047394

PATIENT
  Age: 95 Year
  Sex: Female

DRUGS (3)
  1. ESCITALOPRAM [Suspect]
     Dosage: 10 MG
     Route: 048
     Dates: start: 2012, end: 201304
  2. TEMESTA [Suspect]
     Dosage: 3 MG
     Route: 048
     Dates: start: 2012, end: 201304
  3. IMOVANE [Suspect]
     Dosage: 3.75 MG
     Route: 048
     Dates: start: 2012, end: 201304

REACTIONS (2)
  - Rash [Unknown]
  - Pruritus [Recovered/Resolved]
